FAERS Safety Report 17345499 (Version 1)
Quarter: 2020Q1

REPORT INFORMATION
  Report Type: Spontaneous
  Country: CN (occurrence: CN)
  Receive Date: 20200129
  Receipt Date: 20200129
  Transmission Date: 20200409
  Serious: Yes (Hospitalization)
  Sender: FDA-Public Use
  Company Number: NVSC2020CN017495

PATIENT
  Age: 73 Year
  Sex: Female

DRUGS (1)
  1. ZOLEDRONIC ACID [Suspect]
     Active Substance: ZOLEDRONIC ACID
     Indication: BONE PAIN
     Dosage: 5 MG, QD
     Route: 042
     Dates: start: 20200121, end: 20200121

REACTIONS (1)
  - Respiratory disorder [Recovering/Resolving]

NARRATIVE: CASE EVENT DATE: 20200121
